FAERS Safety Report 13675990 (Version 1)
Quarter: 2017Q2

REPORT INFORMATION
  Report Type: Spontaneous
  Country: US (occurrence: US)
  Receive Date: 20170620
  Receipt Date: 20170620
  Transmission Date: 20170830
  Serious: No
  Sender: FDA-Public Use
  Company Number: None

PATIENT
  Age: 39 Year
  Sex: Male
  Weight: 78.75 kg

DRUGS (1)
  1. NO-AD SPORT 50 SUNSCREEN [Suspect]
     Active Substance: AVOBENZONE\HOMOSALATE\OCTISALATE\OXYBENZONE
     Indication: PROPHYLAXIS AGAINST SOLAR RADIATION
     Dosage: OTHER STRENGTH:SPF;QUANTITY:1 APPLY LIBERALLY;OTHER FREQUENCY:EVERY 80 MINUTES;OTHER ROUTE:ON THE SKIN ONLY?
     Dates: start: 20170617, end: 20170617

REACTIONS (2)
  - Application site burn [None]
  - Burning sensation [None]

NARRATIVE: CASE EVENT DATE: 20170617
